FAERS Safety Report 5492279-2 (Version None)
Quarter: 2007Q4

REPORT INFORMATION
  Report Type: 
  Country: None (occurrence: None)
  Receive Date: 20071022
  Receipt Date: 20071012
  Transmission Date: 20080405
  Serious: No
  Sender: FDA-Public Use
  Company Number: JP-SANOFI-SYNTHELABO-A01200708171

PATIENT
  Sex: Female
  Weight: 40 kg

DRUGS (5)
  1. BONALON [Concomitant]
     Indication: OSTEOPOROSIS
     Dosage: UNK
     Route: 048
     Dates: start: 20061114
  2. JUVELA N [Concomitant]
     Indication: PERIPHERAL CIRCULATORY FAILURE
     Dosage: UNK
     Route: 048
     Dates: start: 20040220
  3. DIOVAN [Concomitant]
     Indication: HYPERTENSION
     Route: 048
     Dates: start: 20040416
  4. PLAVIX [Suspect]
     Indication: CEREBRAL INFARCTION
     Route: 048
     Dates: start: 20070112, end: 20070223
  5. D-ALFA [Concomitant]
     Indication: OSTEOPOROSIS
     Route: 048
     Dates: start: 20040220

REACTIONS (1)
  - LIVER DISORDER [None]
